FAERS Safety Report 7587197-X (Version None)
Quarter: 2011Q3

REPORT INFORMATION
  Report Type: 
  Country: None (occurrence: None)
  Receive Date: 20110701
  Receipt Date: 20110622
  Transmission Date: 20111222
  Serious: Yes (Hospitalization)
  Sender: FDA-Public Use
  Company Number: US-ELI_LILLY_AND_COMPANY-US201106007258

PATIENT
  Sex: Female

DRUGS (2)
  1. HUMULIN R [Suspect]
     Indication: DIABETES MELLITUS
     Dosage: 35 U, UNK
  2. HUMULIN R [Suspect]

REACTIONS (4)
  - DRUG DISPENSING ERROR [None]
  - AORTIC VALVE DISEASE [None]
  - CARDIAC DISORDER [None]
  - BLOOD GLUCOSE INCREASED [None]
